FAERS Safety Report 10758539 (Version 1)
Quarter: 2015Q1

REPORT INFORMATION
  Report Type: Report from Study
  Country: FR (occurrence: FR)
  Receive Date: 20150203
  Receipt Date: 20150203
  Transmission Date: 20150721
  Serious: Yes (Death)
  Sender: FDA-Public Use
  Company Number: FR-CELGENE-FRA-2015013725

PATIENT
  Age: 74 Year
  Sex: Male
  Weight: 96 kg

DRUGS (7)
  1. PRAVASTATIN [Concomitant]
     Active Substance: PRAVASTATIN\PRAVASTATIN SODIUM
     Indication: DYSLIPIDAEMIA
     Dosage: 190 MILLIGRAM
     Route: 048
  2. TEMERIT [Concomitant]
     Active Substance: NEBIVOLOL
     Indication: HYPERTENSION
     Dosage: 40 MILLIGRAM
     Route: 048
     Dates: start: 20141215
  3. AZACITIDINE. [Suspect]
     Active Substance: AZACITIDINE
     Indication: MYELODYSPLASTIC SYNDROME
     Dosage: 146 MILLIGRAM
     Route: 058
     Dates: start: 20141223, end: 20141229
  4. INNOHEP [Suspect]
     Active Substance: TINZAPARIN SODIUM
     Indication: PROPHYLAXIS
     Dosage: UI
     Route: 058
     Dates: start: 20141215
  5. FUROSEMIDE. [Concomitant]
     Active Substance: FUROSEMIDE
     Indication: HYPERTENSION
     Dosage: 17500 DOSAGE FORMS
     Route: 048
     Dates: start: 20141215
  6. VALSARTAN. [Concomitant]
     Active Substance: VALSARTAN
     Indication: HYPERTENSION
     Dosage: 20 MILLIGRAM
     Route: 048
  7. EUPRESSYL [Concomitant]
     Active Substance: URAPIDIL
     Indication: HYPERTENSION
     Route: 048

REACTIONS (1)
  - Cerebral haemorrhage [Fatal]

NARRATIVE: CASE EVENT DATE: 20150117
